FAERS Safety Report 8890158 (Version 1)
Quarter: 2012Q4

REPORT INFORMATION
  Report Type: 
  Country: CA (occurrence: CA)
  Receive Date: 20121106
  Receipt Date: 20121106
  Transmission Date: 20130627
  Serious: Yes (Other)
  Sender: FDA-Public Use
  Company Number: PHHY2005CA007824

PATIENT
  Sex: Male

DRUGS (6)
  1. SANDOSTATIN LAR [Suspect]
     Dates: start: 20050831
  2. ALTACE [Concomitant]
  3. ASAPHEN [Concomitant]
  4. LIPITOR [Concomitant]
  5. METOPROLOL [Concomitant]
  6. PLAVIX [Concomitant]

REACTIONS (6)
  - Hypotension [Unknown]
  - Hypertension [Unknown]
  - Pain [Unknown]
  - Stress [Unknown]
  - Vomiting [Unknown]
  - Hyperglycaemia [Unknown]
